FAERS Safety Report 17892912 (Version 4)
Quarter: 2024Q3

REPORT INFORMATION
  Report Type: Spontaneous
  Country: US (occurrence: US)
  Receive Date: 20200613
  Receipt Date: 20240925
  Transmission Date: 20241016
  Serious: Yes (Death, Hospitalization, Other)
  Sender: TEVA
  Company Number: US-TEVA-2020-US-1247798

PATIENT
  Age: 65 Year
  Sex: Male
  Weight: 90.718 kg

DRUGS (11)
  1. HYDROCHLOROTHIAZIDE\VALSARTAN [Suspect]
     Active Substance: HYDROCHLOROTHIAZIDE\VALSARTAN
     Indication: Hypertension
     Dosage: 320 - 12.5 MG
     Route: 065
     Dates: start: 20121115, end: 20141221
  2. HYDROCHLOROTHIAZIDE\VALSARTAN [Suspect]
     Active Substance: HYDROCHLOROTHIAZIDE\VALSARTAN
     Indication: Hypertension
     Dosage: 320 - 25 MG
     Route: 065
     Dates: start: 20141112, end: 20150210
  3. HYDROCHLOROTHIAZIDE\VALSARTAN [Suspect]
     Active Substance: HYDROCHLOROTHIAZIDE\VALSARTAN
     Indication: Hypertension
     Dosage: 320-12.5 MG
     Route: 065
     Dates: start: 20150205, end: 20150803
  4. HYDROCHLOROTHIAZIDE\VALSARTAN [Suspect]
     Active Substance: HYDROCHLOROTHIAZIDE\VALSARTAN
     Indication: Hypertension
     Dosage: 320-12.5 MG
     Route: 065
     Dates: start: 20150820, end: 20160904
  5. LATANOPROST [Concomitant]
     Active Substance: LATANOPROST
     Indication: Intraocular pressure test abnormal
     Dosage: TIME INTERVAL: AS NECESSARY: 0.005 %
     Route: 047
     Dates: start: 20120131, end: 201802
  6. LABETALOL HYDROCHLORIDE [Concomitant]
     Active Substance: LABETALOL\LABETALOL HYDROCHLORIDE
     Indication: Hypertension
     Route: 065
     Dates: start: 20110712, end: 201301
  7. METFORMIN HYDROCHLORIDE [Concomitant]
     Active Substance: METFORMIN HYDROCHLORIDE
     Indication: Diabetes mellitus
     Route: 065
     Dates: start: 20110623, end: 2016
  8. VITAMINS [Concomitant]
     Active Substance: VITAMINS
     Indication: Product used for unknown indication
     Dosage: DOSAGE TEXT: FOR AID TO HEALTH
     Route: 065
     Dates: start: 2013, end: 2019
  9. VITAMINS [Concomitant]
     Active Substance: VITAMINS
     Indication: Product used for unknown indication
     Dosage: DOSAGE TEXT: FOR AID TO HEALTH
     Route: 065
     Dates: start: 2013, end: 2019
  10. VITAMIN E [Concomitant]
     Active Substance: .ALPHA.-TOCOPHEROL
     Indication: Product used for unknown indication
     Route: 065
     Dates: start: 2013, end: 2019
  11. VITAMIN E [Concomitant]
     Active Substance: .ALPHA.-TOCOPHEROL
     Indication: Product used for unknown indication
     Route: 065
     Dates: start: 2013, end: 2019

REACTIONS (6)
  - Cholangiocarcinoma [Fatal]
  - Hepatic cancer [Fatal]
  - Prostate cancer [Unknown]
  - Bone cancer metastatic [Fatal]
  - Intestinal obstruction [Unknown]
  - Gallbladder cancer stage III [Fatal]

NARRATIVE: CASE EVENT DATE: 20150324
